FAERS Safety Report 5124152-3 (Version None)
Quarter: 2006Q4

REPORT INFORMATION
  Report Type: 
  Country: None (occurrence: None)
  Receive Date: 20061010
  Receipt Date: 20060511
  Transmission Date: 20070319
  Serious: No
  Sender: FDA-Public Use
  Company Number: US-BRISTOL-MYERS SQUIBB COMPANY-13375282

PATIENT
  Age: 51 Year
  Sex: Male

DRUGS (5)
  1. AVAPRO [Suspect]
     Indication: HYPERTENSION
     Dates: start: 20050210
  2. AVAPRO [Suspect]
     Indication: HYPERTENSION
     Dates: start: 20050210
  3. AVAPRO [Suspect]
     Dates: start: 20060501
  4. NEXIUM [Concomitant]
     Dates: start: 20050406
  5. LIPITOR [Concomitant]
     Dates: start: 20050209

REACTIONS (1)
  - DRUG INEFFECTIVE [None]
